FAERS Safety Report 25032953 (Version 2)
Quarter: 2025Q1

REPORT INFORMATION
  Report Type: Spontaneous
  Country: FR (occurrence: FR)
  Receive Date: 20250303
  Receipt Date: 20250314
  Transmission Date: 20250408
  Serious: Yes (Death, Other)
  Sender: TEVA
  Company Number: FR-TEVA-VS-3305044

PATIENT
  Age: 52 Year

DRUGS (15)
  1. METHOTREXATE [Suspect]
     Active Substance: METHOTREXATE
     Indication: Acute lymphocytic leukaemia refractory
     Route: 037
  2. CYTARABINE [Suspect]
     Active Substance: CYTARABINE
     Indication: Acute lymphocytic leukaemia refractory
     Route: 037
  3. CYCLOPHOSPHAMIDE [Suspect]
     Active Substance: CYCLOPHOSPHAMIDE
     Indication: Acute lymphocytic leukaemia refractory
     Route: 037
  4. CYCLOPHOSPHAMIDE [Suspect]
     Active Substance: CYCLOPHOSPHAMIDE
     Indication: Acute lymphocytic leukaemia refractory
     Dosage: DAY 1 TO DAY 3
     Route: 037
  5. VINCRISTINE [Suspect]
     Active Substance: VINCRISTINE
     Indication: Acute lymphocytic leukaemia refractory
     Route: 065
  6. VINCRISTINE [Suspect]
     Active Substance: VINCRISTINE
     Indication: Acute lymphocytic leukaemia refractory
     Route: 065
  7. ADRIAMYCIN [Suspect]
     Active Substance: DOXORUBICIN HYDROCHLORIDE
     Indication: Acute lymphocytic leukaemia refractory
     Route: 050
  8. ADRIAMYCIN [Suspect]
     Active Substance: DOXORUBICIN HYDROCHLORIDE
     Indication: Acute lymphocytic leukaemia refractory
     Dosage: IN CONTINUOUS INFUSION D4
     Route: 050
  9. DEPO-MEDROL [Suspect]
     Active Substance: METHYLPREDNISOLONE ACETATE
     Indication: Acute lymphocytic leukaemia refractory
     Route: 037
  10. ICLUSIG [Suspect]
     Active Substance: PONATINIB HYDROCHLORIDE
     Indication: Acute lymphocytic leukaemia refractory
     Route: 048
  11. ICLUSIG [Suspect]
     Active Substance: PONATINIB HYDROCHLORIDE
     Indication: Acute lymphocytic leukaemia refractory
     Route: 065
  12. BLINATUMOMAB [Suspect]
     Active Substance: BLINATUMOMAB
     Indication: Acute lymphocytic leukaemia refractory
     Route: 042
  13. BLINATUMOMAB [Suspect]
     Active Substance: BLINATUMOMAB
     Indication: Acute lymphocytic leukaemia refractory
     Route: 042
  14. BLINATUMOMAB [Suspect]
     Active Substance: BLINATUMOMAB
     Indication: Acute lymphocytic leukaemia refractory
     Route: 042
  15. DEXAMETHASONE [Suspect]
     Active Substance: DEXAMETHASONE
     Indication: Acute lymphocytic leukaemia refractory
     Route: 048

REACTIONS (5)
  - Death [Fatal]
  - Left ventricular dysfunction [Unknown]
  - Myelosuppression [Unknown]
  - Acquired gene mutation [Unknown]
  - Dilated cardiomyopathy [Unknown]
